FAERS Safety Report 7032716-5 (Version None)
Quarter: 2010Q4

REPORT INFORMATION
  Report Type: 
  Country: None (occurrence: None)
  Receive Date: 20101007
  Receipt Date: 20100928
  Transmission Date: 20110411
  Serious: Yes (Other)
  Sender: FDA-Public Use
  Company Number: JP-ROCHE-730661

PATIENT
  Sex: Male
  Weight: 56 kg

DRUGS (5)
  1. AVASTIN [Suspect]
     Indication: COLON CANCER METASTATIC
     Route: 041
     Dates: start: 20100729, end: 20100729
  2. FLUOROURACIL [Suspect]
     Indication: COLON CANCER METASTATIC
     Dosage: ROUTE: INTRAVENOUS BOLUS
     Route: 042
     Dates: start: 20100729, end: 20100729
  3. FLUOROURACIL [Suspect]
     Dosage: DOSE :2500 MG, ROUTE: INTRAVENOUS DRIP
     Route: 042
     Dates: start: 20100729, end: 20100731
  4. ELPLAT [Concomitant]
     Route: 041
     Dates: start: 20100729, end: 20100729
  5. LEUCOVORIN CALCIUM [Concomitant]
     Route: 041
     Dates: start: 20100729, end: 20100729

REACTIONS (2)
  - STOMATITIS [None]
  - TOXIC SKIN ERUPTION [None]
